FAERS Safety Report 16084803 (Version 1)
Quarter: 2019Q1

REPORT INFORMATION
  Report Type: Spontaneous
  Country: US (occurrence: US)
  Receive Date: 20190318
  Receipt Date: 20190318
  Transmission Date: 20190418
  Serious: No
  Sender: FDA-Public Use
  Company Number: US-AVADEL SPECIALTY PHARMACEUTICALS, LLC-2019AVA00005

PATIENT
  Age: 75 Year
  Sex: Male
  Weight: 95.24 kg

DRUGS (7)
  1. NOCTIVA [Suspect]
     Active Substance: DESMOPRESSIN ACETATE
     Indication: NOCTURIA
     Dosage: 0.83 ?G, 1X/DAY 30 MINUTES BEFORE BEDTIME
     Route: 045
     Dates: start: 20181223, end: 20181231
  2. CENTRUM [Concomitant]
     Active Substance: VITAMINS
  3. SIMVASTATIN. [Concomitant]
     Active Substance: SIMVASTATIN
  4. TAMSULOSIN [Concomitant]
     Active Substance: TAMSULOSIN
  5. OMEPRAZOLE. [Concomitant]
     Active Substance: OMEPRAZOLE
  6. METFORMIN [Concomitant]
     Active Substance: METFORMIN HYDROCHLORIDE
  7. FINASTERIDE. [Concomitant]
     Active Substance: FINASTERIDE

REACTIONS (7)
  - Headache [Recovered/Resolved]
  - Drug ineffective [Recovered/Resolved]
  - Nasal discomfort [Recovered/Resolved]
  - Eye irritation [Recovered/Resolved]
  - Rhinorrhoea [Recovered/Resolved]
  - Lacrimation increased [Recovered/Resolved]
  - Product preparation issue [Recovered/Resolved]

NARRATIVE: CASE EVENT DATE: 20181223
